FAERS Safety Report 8432997-7 (Version None)
Quarter: 2012Q2

REPORT INFORMATION
  Report Type: 
  Country: None (occurrence: None)
  Receive Date: 20120613
  Receipt Date: 20120608
  Transmission Date: 20120825
  Serious: Yes (Other)
  Sender: FDA-Public Use
  Company Number: IT-ROCHE-1076948

PATIENT
  Sex: Male

DRUGS (20)
  1. AXAGON [Concomitant]
     Route: 048
     Dates: start: 20110405, end: 20110716
  2. ENOXAPARIN SODIUM [Concomitant]
     Route: 058
     Dates: start: 20110614, end: 20110716
  3. PROMAZINE HYDROCHLORIDE [Concomitant]
  4. VANCOMICINA [Concomitant]
     Dates: start: 20110528, end: 20110614
  5. PHENYTOIN SODIUM [Concomitant]
     Indication: EPILEPSY
     Route: 048
     Dates: start: 20030101
  6. SPORANOX [Concomitant]
     Indication: ANTIFUNGAL PROPHYLAXIS
     Route: 048
     Dates: start: 20110405, end: 20110716
  7. BACTRIM DS [Concomitant]
     Dates: start: 20110405, end: 20110429
  8. MABTHERA [Suspect]
     Indication: VASCULITIS
     Route: 042
     Dates: start: 20110423, end: 20110511
  9. DELTACORTENE FORTE [Concomitant]
     Indication: VASCULITIS
     Route: 048
     Dates: start: 20110405, end: 20110716
  10. LINEZOLID [Concomitant]
     Dates: start: 20110412, end: 20110502
  11. CLOPIXOL [Suspect]
     Indication: DELIRIUM
     Route: 048
     Dates: start: 20110422, end: 20110716
  12. CALCIUM CARBONATE [Concomitant]
     Indication: RENAL FAILURE CHRONIC
     Route: 048
     Dates: start: 20110405, end: 20110716
  13. SODIUM BICARBONATE [Concomitant]
     Indication: RENAL FAILURE CHRONIC
     Route: 048
     Dates: start: 20110405, end: 20110716
  14. FOLINA [Concomitant]
     Route: 048
     Dates: start: 20110405, end: 20110716
  15. DIDROGYL [Concomitant]
     Route: 048
     Dates: start: 20110405, end: 20110716
  16. ARANESP [Concomitant]
     Indication: NEPHROGENIC ANAEMIA
     Route: 058
     Dates: start: 20110405, end: 20110716
  17. CIPROFLOXACIN HCL [Concomitant]
     Dates: start: 20110529, end: 20110616
  18. MYCOSTATIN [Concomitant]
     Indication: ANTIFUNGAL PROPHYLAXIS
     Route: 048
     Dates: start: 20110405, end: 20110716
  19. YOVIS [Concomitant]
     Indication: PROPHYLAXIS
     Route: 048
     Dates: start: 20110405, end: 20110716
  20. LASIX [Concomitant]
     Indication: RENAL FAILURE CHRONIC
     Dates: start: 20110405, end: 20110716

REACTIONS (1)
  - NEUTROPENIA [None]
